FAERS Safety Report 17830843 (Version 3)
Quarter: 2021Q4

REPORT INFORMATION
  Report Type: Spontaneous
  Country: CH (occurrence: CH)
  Receive Date: 20200527
  Receipt Date: 20211123
  Transmission Date: 20220303
  Serious: Yes (Other)
  Sender: FDA-Public Use
  Company Number: CH-SM-2020-12940

PATIENT
  Age: 61 Year
  Sex: Female

DRUGS (49)
  1. HALDOL [Suspect]
     Active Substance: HALOPERIDOL
     Indication: Product used for unknown indication
     Route: 065
     Dates: start: 20200416, end: 20200416
  2. CEFTRIAXONE [Suspect]
     Active Substance: CEFTRIAXONE
     Indication: Product used for unknown indication
     Route: 065
     Dates: start: 20200401, end: 20200405
  3. CLARITHROMYCIN [Suspect]
     Active Substance: CLARITHROMYCIN
     Indication: Product used for unknown indication
     Route: 065
     Dates: start: 20200401, end: 20200402
  4. ZITHROMAX [Suspect]
     Active Substance: AZITHROMYCIN DIHYDRATE
     Indication: Product used for unknown indication
     Route: 065
     Dates: start: 20200402, end: 20200406
  5. REMDESIVIR [Suspect]
     Active Substance: REMDESIVIR
     Indication: Product used for unknown indication
     Route: 065
     Dates: start: 20200405, end: 20200413
  6. AMLODIPINE [Suspect]
     Active Substance: AMLODIPINE BESYLATE
     Indication: Product used for unknown indication
     Route: 065
     Dates: start: 20200410, end: 20200410
  7. OXAZEPAM [Suspect]
     Active Substance: OXAZEPAM
     Indication: Product used for unknown indication
     Route: 065
     Dates: start: 20200408, end: 20200411
  8. ENOXAPARIN SODIUM [Suspect]
     Active Substance: ENOXAPARIN SODIUM
     Indication: Product used for unknown indication
     Route: 065
     Dates: end: 20200403
  9. ENOXAPARIN SODIUM [Suspect]
     Active Substance: ENOXAPARIN SODIUM
     Route: 065
     Dates: start: 20200404, end: 20200417
  10. DAFALGAN [Suspect]
     Active Substance: ACETAMINOPHEN
     Indication: Product used for unknown indication
     Route: 065
     Dates: start: 20200408, end: 20200413
  11. DAFALGAN [Suspect]
     Active Substance: ACETAMINOPHEN
     Route: 065
     Dates: start: 20200417, end: 20200418
  12. LASIX [Suspect]
     Active Substance: FUROSEMIDE
     Indication: Product used for unknown indication
     Route: 065
     Dates: start: 20200406, end: 20200406
  13. LASIX [Suspect]
     Active Substance: FUROSEMIDE
     Route: 065
     Dates: start: 20200408, end: 20200411
  14. LASIX [Suspect]
     Active Substance: FUROSEMIDE
     Dates: start: 20200421, end: 20200423
  15. NEXIUM [Suspect]
     Active Substance: ESOMEPRAZOLE MAGNESIUM
     Indication: Product used for unknown indication
     Route: 065
     Dates: end: 20200405
  16. NEXIUM [Suspect]
     Active Substance: ESOMEPRAZOLE MAGNESIUM
     Route: 065
     Dates: start: 20200423
  17. QUETIAPINE [Suspect]
     Active Substance: QUETIAPINE
     Indication: Product used for unknown indication
     Route: 065
     Dates: start: 20200414, end: 20200414
  18. LORAZEPAM [Suspect]
     Active Substance: LORAZEPAM
     Indication: Product used for unknown indication
     Route: 065
     Dates: start: 20200416, end: 20200416
  19. DIAMOX                             /00016901/ [Concomitant]
     Dates: start: 20200408, end: 20200408
  20. DIAMOX                             /00016901/ [Concomitant]
     Dates: start: 20200415, end: 20200415
  21. DIAMOX                             /00016901/ [Concomitant]
     Dates: start: 20200419, end: 20200419
  22. DISTRANEURIN                       /00027501/ [Concomitant]
     Indication: Product used for unknown indication
     Route: 065
     Dates: start: 20200412, end: 20200413
  23. NOVORAPID [Concomitant]
     Active Substance: INSULIN ASPART
     Indication: Product used for unknown indication
     Route: 065
     Dates: start: 20200420, end: 20200420
  24. ALBUTEROL SULFATE\IPRATROPIUM BROMIDE [Concomitant]
     Active Substance: ALBUTEROL SULFATE\IPRATROPIUM BROMIDE
     Indication: Product used for unknown indication
     Route: 065
     Dates: start: 20200407, end: 20200409
  25. HEPARINE                           /00027701/ [Concomitant]
     Indication: Product used for unknown indication
     Route: 065
     Dates: start: 20200418, end: 20200423
  26. BROMAZEPAM [Concomitant]
     Active Substance: BROMAZEPAM
     Indication: Product used for unknown indication
     Route: 065
     Dates: start: 20200419, end: 20200420
  27. MOVICOL [Concomitant]
     Active Substance: POLYETHYLENE GLYCOL 3350\POTASSIUM CHLORIDE\SODIUM BICARBONATE\SODIUM CHLORIDE
     Indication: Product used for unknown indication
     Route: 065
     Dates: start: 20200404
  28. MORPHINE [Concomitant]
     Active Substance: MORPHINE
     Indication: Product used for unknown indication
     Route: 065
     Dates: start: 20200410, end: 20200411
  29. NOZINAN                            /00038601/ [Concomitant]
     Indication: Product used for unknown indication
     Route: 065
     Dates: start: 20200419, end: 20200419
  30. SOLU-MEDROL [Concomitant]
     Active Substance: METHYLPREDNISOLONE SODIUM SUCCINATE
     Indication: Product used for unknown indication
     Route: 065
     Dates: start: 20200420, end: 20200423
  31. DEXMEDETOMIDINE HYDROCHLORIDE [Concomitant]
     Active Substance: DEXMEDETOMIDINE HYDROCHLORIDE
     Indication: Product used for unknown indication
     Route: 065
     Dates: start: 20200407, end: 20200410
  32. DEXMEDETOMIDINE HYDROCHLORIDE [Concomitant]
     Active Substance: DEXMEDETOMIDINE HYDROCHLORIDE
     Dates: start: 20200414, end: 20200419
  33. DEXMEDETOMIDINE HYDROCHLORIDE [Concomitant]
     Active Substance: DEXMEDETOMIDINE HYDROCHLORIDE
     Dates: start: 20200423
  34. FENTANYL CITRATE [Concomitant]
     Active Substance: FENTANYL CITRATE
     Indication: Product used for unknown indication
     Route: 065
     Dates: start: 20200403, end: 20200409
  35. FENTANYL CITRATE [Concomitant]
     Active Substance: FENTANYL CITRATE
     Dates: start: 20200411, end: 20200423
  36. DORMICUM                           /00036201/ [Concomitant]
     Indication: Product used for unknown indication
     Route: 065
     Dates: start: 20200403, end: 20200405
  37. DORMICUM                           /00036201/ [Concomitant]
     Dates: start: 20200416, end: 20200416
  38. DORMICUM                           /00036201/ [Concomitant]
     Dates: start: 20200419, end: 20200420
  39. NORADRENALINE                      /00127501/ [Concomitant]
     Indication: Product used for unknown indication
     Route: 065
     Dates: start: 20200403, end: 20200405
  40. NORADRENALINE                      /00127501/ [Concomitant]
     Dates: start: 20200408, end: 20200410
  41. NORADRENALINE                      /00127501/ [Concomitant]
     Dates: start: 20200413, end: 20200423
  42. PROPOFOL [Concomitant]
     Active Substance: PROPOFOL
     Indication: Product used for unknown indication
     Route: 065
     Dates: start: 20200404, end: 20200405
  43. PROPOFOL [Concomitant]
     Active Substance: PROPOFOL
     Dates: start: 20200407, end: 20200409
  44. PROPOFOL [Concomitant]
     Active Substance: PROPOFOL
     Dates: start: 20200413, end: 20200414
  45. PROPOFOL [Concomitant]
     Active Substance: PROPOFOL
     Dates: start: 20200416, end: 20200423
  46. ROCURONIUM [Concomitant]
     Active Substance: ROCURONIUM BROMIDE
     Indication: Product used for unknown indication
     Route: 065
     Dates: start: 20200419, end: 20200419
  47. TRACRIUM [Concomitant]
     Active Substance: ATRACURIUM BESYLATE
     Indication: Product used for unknown indication
     Route: 065
     Dates: start: 20200403, end: 20200404
  48. TRACRIUM [Concomitant]
     Active Substance: ATRACURIUM BESYLATE
     Dates: start: 20200413, end: 20200414
  49. TRACRIUM [Concomitant]
     Active Substance: ATRACURIUM BESYLATE
     Dates: start: 20200417, end: 20200417

REACTIONS (1)
  - Rash erythematous [Recovered/Resolved]

NARRATIVE: CASE EVENT DATE: 20200421
